FAERS Safety Report 18113728 (Version 4)
Quarter: 2020Q3

REPORT INFORMATION
  Report Type: Report from Study
  Country: CZ (occurrence: CZ)
  Receive Date: 20200805
  Receipt Date: 20200921
  Transmission Date: 20201103
  Serious: Yes (Hospitalization)
  Sender: FDA-Public Use
  Company Number: NVSC2020CZ040007

PATIENT
  Age: 48 Year
  Sex: Female
  Weight: 62.5 kg

DRUGS (23)
  1. ISCALIMAB [Suspect]
     Active Substance: ISCALIMAB
     Indication: RENAL TRANSPLANT
     Dosage: 3 ML, Q2W
     Route: 058
     Dates: start: 20190911, end: 20200129
  2. PREDNISONE. [Concomitant]
     Active Substance: PREDNISONE
     Indication: PROPHYLAXIS
     Dosage: UNK
     Route: 065
     Dates: start: 20190911, end: 20200212
  3. OMEPRAZOLE. [Concomitant]
     Active Substance: OMEPRAZOLE
     Indication: PROPHYLAXIS
     Dosage: UNK
     Route: 065
     Dates: start: 20200115
  4. BUTAMIRATE [Concomitant]
     Active Substance: BUTAMIRATE
     Indication: DYSPNOEA
     Dosage: UNK
     Route: 065
     Dates: start: 20200129, end: 20200212
  5. METOPROLOL. [Concomitant]
     Active Substance: METOPROLOL
     Dosage: UNK
     Route: 065
     Dates: start: 20200213, end: 20200301
  6. CETRIZIN [Concomitant]
     Indication: DYSPNOEA
     Dosage: UNK
     Route: 065
     Dates: start: 20200129, end: 20200212
  7. ROSUVASTATINUM [Concomitant]
     Active Substance: ROSUVASTATIN
     Indication: LIVER FUNCTION TEST INCREASED
     Dosage: UNK
     Route: 065
     Dates: start: 20191204, end: 20200212
  8. URSODEOXYCHOLIC ACID [Concomitant]
     Active Substance: URSODIOL
     Indication: DYSLIPIDAEMIA
     Dosage: UNK
     Route: 065
     Dates: start: 20190531, end: 20200212
  9. ACETYLCYSTEINUM [Concomitant]
     Indication: BRONCHITIS
     Dosage: UNK
     Route: 065
     Dates: start: 20200107, end: 20200212
  10. ESOMEPRAZOLUM [Concomitant]
     Dosage: UNK
     Route: 065
     Dates: start: 20200115, end: 20200217
  11. MYCOPHENOLATE MOFETIL. [Suspect]
     Active Substance: MYCOPHENOLATE MOFETIL
     Indication: RENAL TRANSPLANT
     Dosage: UNK
     Route: 048
     Dates: start: 20190911
  12. TACROLIMUS. [Suspect]
     Active Substance: TACROLIMUS
     Indication: RENAL TRANSPLANT
     Dosage: UNK
     Route: 048
     Dates: start: 20190911
  13. ITOPRIDE [Concomitant]
     Active Substance: ITOPRIDE
     Indication: DYSPEPSIA
     Dosage: UNK
     Route: 065
     Dates: start: 20200116, end: 20200212
  14. ESOMEPRAZOLUM [Concomitant]
     Indication: DYSPEPSIA
     Dosage: UNK
     Route: 065
     Dates: start: 20200115, end: 20200212
  15. PANTOPRAZOLUM [Concomitant]
     Active Substance: PANTOPRAZOLE
     Indication: ULCER
     Dosage: UNK
     Route: 065
     Dates: start: 20200212, end: 20200213
  16. METOPROLOL. [Concomitant]
     Active Substance: METOPROLOL
     Indication: HYPERTENSION
     Dosage: UNK
     Route: 065
     Dates: start: 20200116, end: 20200212
  17. CIPROFLOXACIN. [Concomitant]
     Active Substance: CIPROFLOXACIN
     Indication: LEUKOCYTOSIS
  18. CHLORHEXIDINE [Concomitant]
     Active Substance: CHLORHEXIDINE
     Indication: GINGIVITIS
     Dosage: UNK
     Route: 065
     Dates: start: 20200115, end: 20200129
  19. EZETIMIBUM [Concomitant]
     Indication: DYSLIPIDAEMIA
     Dosage: UNK
     Route: 065
     Dates: start: 20190531, end: 20200212
  20. NYSTATINUM [Concomitant]
     Active Substance: NYSTATIN
     Indication: APHTHOUS ULCER
     Dosage: UNK
     Route: 065
     Dates: start: 20200110, end: 20200212
  21. CIPROFLOXACIN. [Concomitant]
     Active Substance: CIPROFLOXACIN
     Indication: RESPIRATORY TRACT INFECTION
     Dosage: UNK
     Route: 065
     Dates: start: 20200129, end: 20200309
  22. ACETYLSALICYLIC ACID [Concomitant]
     Active Substance: ASPIRIN
     Indication: THROMBOSIS PROPHYLAXIS
     Dosage: UNK
     Route: 065
     Dates: start: 20190926
  23. CINACALCETUM [Concomitant]
     Indication: HYPERPARATHYROIDISM
     Dosage: UNK
     Route: 065
     Dates: start: 20190329, end: 20200810

REACTIONS (1)
  - Pneumocystis jirovecii pneumonia [Recovered/Resolved]

NARRATIVE: CASE EVENT DATE: 20200212
